FAERS Safety Report 11427408 (Version 2)
Quarter: 2018Q4

REPORT INFORMATION
  Report Type: Report from Study
  Country: US (occurrence: US)
  Receive Date: 20150827
  Receipt Date: 20181212
  Transmission Date: 20190204
  Serious: No
  Sender: FDA-Public Use
  Company Number: US-SA-2015SA115839

PATIENT
  Age: 68 Year
  Sex: Female

DRUGS (1)
  1. AGALSIDASE BETA [Suspect]
     Active Substance: AGALSIDASE BETA
     Indication: FABRY^S DISEASE
     Dosage: DOSE: 95(UNITS NOT PROVIDED) FREQEUNCY: Q2
     Route: 041
     Dates: start: 20150416

REACTIONS (4)
  - Infusion related reaction [Unknown]
  - Nasopharyngitis [Unknown]
  - Multiple allergies [Unknown]
  - Pruritus [Unknown]

NARRATIVE: CASE EVENT DATE: 20150727
